FAERS Safety Report 16961895 (Version 1)
Quarter: 2019Q4

REPORT INFORMATION
  Report Type: Spontaneous
  Country: US (occurrence: US)
  Receive Date: 20191024
  Receipt Date: 20191024
  Transmission Date: 20200122
  Serious: Yes (Other)
  Sender: FDA-Public Use
  Company Number: None

PATIENT
  Age: 81 Year
  Sex: Male
  Weight: 88.65 kg

DRUGS (17)
  1. MUCINEX [Concomitant]
     Active Substance: GUAIFENESIN
  2. RANITIDINE. [Concomitant]
     Active Substance: RANITIDINE
  3. ACETAMINOPHEN. [Concomitant]
     Active Substance: ACETAMINOPHEN
  4. CYCLOBENZAPRINE. [Concomitant]
     Active Substance: CYCLOBENZAPRINE
  5. FINASTERIDE. [Concomitant]
     Active Substance: FINASTERIDE
  6. SIMVASTATIN. [Concomitant]
     Active Substance: SIMVASTATIN
  7. METOPROLOL. [Concomitant]
     Active Substance: METOPROLOL
  8. PROPYLTHIOURACIL. [Concomitant]
     Active Substance: PROPYLTHIOURACIL
  9. TERAZOSIN [Concomitant]
     Active Substance: TERAZOSIN HYDROCHLORIDE
  10. CAPECITABINE. [Suspect]
     Active Substance: CAPECITABINE
     Indication: COLON CANCER
     Route: 048
     Dates: start: 20190605
  11. LOSARTAN. [Concomitant]
     Active Substance: LOSARTAN
  12. POTASSIUM [Concomitant]
     Active Substance: POTASSIUM
  13. ASPIRIN. [Concomitant]
     Active Substance: ASPIRIN
  14. PROCHLORPERAZINE. [Concomitant]
     Active Substance: PROCHLORPERAZINE
  15. PHOSPHORUS [Concomitant]
     Active Substance: PHOSPHORUS
  16. VENTOLIN [Concomitant]
     Active Substance: ALBUTEROL SULFATE
  17. ZETIA [Concomitant]
     Active Substance: EZETIMIBE

REACTIONS (1)
  - Hyperbilirubinaemia [None]

NARRATIVE: CASE EVENT DATE: 20191001
